FAERS Safety Report 19616697 (Version 1)
Quarter: 2021Q3

REPORT INFORMATION
  Report Type: Spontaneous
  Country: US (occurrence: US)
  Receive Date: 20210727
  Receipt Date: 20210727
  Transmission Date: 20211014
  Serious: No
  Sender: FDA-Public Use
  Company Number: US-ABBVIE-21K-163-3778659-00

PATIENT
  Sex: Female

DRUGS (1)
  1. SYNTHROID [Suspect]
     Active Substance: LEVOTHYROXINE SODIUM
     Indication: PRODUCT USED FOR UNKNOWN INDICATION
     Dosage: ON SYNTHROID FOR 25 YEARS, INCREASED FROM 125 TO 150 MCG
     Route: 048

REACTIONS (4)
  - Depressed mood [Unknown]
  - Crying [Unknown]
  - Blood test abnormal [Unknown]
  - Dry skin [Unknown]
